FAERS Safety Report 7605975-5 (Version None)
Quarter: 2011Q3

REPORT INFORMATION
  Report Type: 
  Country: None (occurrence: None)
  Receive Date: 20110713
  Receipt Date: 20110630
  Transmission Date: 20111222
  Serious: Yes (Hospitalization, Other)
  Sender: FDA-Public Use
  Company Number: PHHY2011US36117

PATIENT
  Age: 82 Year
  Sex: Female

DRUGS (9)
  1. SINGULAIR [Concomitant]
  2. VITAMIN D [Concomitant]
  3. COUMADIN [Concomitant]
  4. CALCIUM CARBONATE [Concomitant]
  5. FOSAMAX [Suspect]
  6. RECLAST [Suspect]
     Indication: OSTEOPOROSIS
     Dosage: 5 MG/100 ML,ONCE IN YEAR
     Route: 042
     Dates: start: 20100817
  7. ASCORBIC ACID [Concomitant]
  8. ANTIDEPRESSANTS [Concomitant]
  9. EVISTA [Concomitant]

REACTIONS (6)
  - THROMBOSIS [None]
  - FEMUR FRACTURE [None]
  - FALL [None]
  - GAIT DISTURBANCE [None]
  - ARTHRALGIA [None]
  - PAIN IN EXTREMITY [None]
